FAERS Safety Report 19509030 (Version 5)
Quarter: 2021Q4

REPORT INFORMATION
  Report Type: Spontaneous
  Country: US (occurrence: US)
  Receive Date: 20210709
  Receipt Date: 20211220
  Transmission Date: 20220303
  Serious: Yes (Hospitalization)
  Sender: FDA-Public Use
  Company Number: US-BIOGEN-2021BI01027195

PATIENT
  Age: 16 Year
  Sex: Male
  Weight: 39.498 kg

DRUGS (2)
  1. SPINRAZA [Suspect]
     Active Substance: NUSINERSEN
     Indication: Spinal muscular atrophy
     Dosage: ADMINISTER 12MG/5ML INTRATHECALLY ONCE EVERY 4 MONTHS.
     Route: 065
  2. SPINRAZA [Suspect]
     Active Substance: NUSINERSEN
     Route: 037
     Dates: start: 20170416

REACTIONS (9)
  - Cerebrospinal fluid leakage [Recovered/Resolved]
  - Acute respiratory failure [Recovered/Resolved]
  - Post procedural complication [Recovered/Resolved]
  - Post lumbar puncture syndrome [Recovered/Resolved]
  - Atelectasis [Recovered/Resolved]
  - Headache [Recovered/Resolved]
  - Off label use [Recovered/Resolved]
  - Neuromuscular scoliosis [Unknown]
  - Anxiety [Unknown]

NARRATIVE: CASE EVENT DATE: 20180611
